FAERS Safety Report 20655727 (Version 1)
Quarter: 2022Q1

REPORT INFORMATION
  Report Type: Spontaneous
  Country: AU (occurrence: AU)
  Receive Date: 20220330
  Receipt Date: 20220330
  Transmission Date: 20220423
  Serious: Yes (Other)
  Sender: FDA-Public Use
  Company Number: AU-ABBVIE-21K-008-4199121-00

PATIENT

DRUGS (11)
  1. TEMOZOLOMIDE [Suspect]
     Active Substance: TEMOZOLOMIDE
     Route: 048
  2. CARBOPLATIN [Suspect]
     Active Substance: CARBOPLATIN
  3. DOXYCYCLINE HYCLATE [Suspect]
     Active Substance: DOXYCYCLINE HYCLATE
  4. ETOPOSIDE [Suspect]
     Active Substance: ETOPOSIDE
  5. IFOSFAMIDE [Suspect]
     Active Substance: IFOSFAMIDE
  6. IMBRUVICA [Suspect]
     Active Substance: IBRUTINIB
     Route: 048
  7. METHOTREXATE [Suspect]
     Active Substance: METHOTREXATE
  8. OBINUTUZUMAB [Suspect]
     Active Substance: OBINUTUZUMAB
  9. OFATUMUMAB [Suspect]
     Active Substance: OFATUMUMAB
  10. RITUXIMAB [Suspect]
     Active Substance: RITUXIMAB
  11. VENETOCLAX [Suspect]
     Active Substance: VENETOCLAX
     Route: 048

REACTIONS (9)
  - Febrile neutropenia [Unknown]
  - Haemorrhage [Unknown]
  - Anaemia [Unknown]
  - Aspergillus infection [Unknown]
  - Atrial fibrillation [Unknown]
  - Cytopenia [Unknown]
  - Infection [Unknown]
  - Neutropenia [Unknown]
  - Thrombocytopenia [Unknown]
